FAERS Safety Report 5778111-8 (Version None)
Quarter: 2008Q2

REPORT INFORMATION
  Report Type: 
  Country: None (occurrence: None)
  Receive Date: 20080619
  Receipt Date: 20080610
  Transmission Date: 20081010
  Serious: Yes (Other)
  Sender: FDA-Public Use
  Company Number: US-JNJFOC-20080100727

PATIENT
  Sex: Female
  Weight: 49.9 kg

DRUGS (5)
  1. REMICADE [Suspect]
     Indication: RHEUMATOID ARTHRITIS
     Route: 042
  2. DARVOCET [Concomitant]
     Indication: PAIN
  3. PRINIVIL [Concomitant]
     Indication: BLOOD PRESSURE ABNORMAL
  4. CLARITIN [Concomitant]
     Indication: MULTIPLE ALLERGIES
  5. PREDNISONE TAB [Concomitant]

REACTIONS (2)
  - ALOPECIA [None]
  - MACULAR DEGENERATION [None]
